FAERS Safety Report 7967956 (Version 2)
Quarter: 2014Q1

REPORT INFORMATION
  Report Type: Spontaneous
  Country: FR (occurrence: FR)
  Receive Date: 20110531
  Receipt Date: 20140131
  Transmission Date: 20141002
  Serious: Yes (Hospitalization)
  Sender: FDA-Public Use
  Company Number: FR-SANOFI-AVENTIS-2011SA033489

PATIENT
  Age: 60 Year
  Sex: Female

DRUGS (10)
  1. PLAVIX [Suspect]
     Indication: MITRAL VALVE REPLACEMENT
     Route: 048
     Dates: end: 20110209
  2. COUMADINE [Suspect]
     Indication: MITRAL VALVE REPLACEMENT
     Route: 048
     Dates: end: 20110209
  3. LASILIX FAIBLE [Concomitant]
     Indication: PRODUCT USED FOR UNKNOWN INDICATION
     Route: 048
  4. MACROGOL [Concomitant]
     Indication: PRODUCT USED FOR UNKNOWN INDICATION
     Dosage: DOSE:1 UNIT(S)
     Route: 048
     Dates: end: 20110209
  5. PROPAFENONE [Concomitant]
     Indication: ATRIAL FIBRILLATION
     Route: 048
  6. LANTUS [Concomitant]
     Indication: TYPE 1 DIABETES MELLITUS
     Route: 058
     Dates: end: 20110209
  7. NOVONORM [Concomitant]
     Indication: TYPE 1 DIABETES MELLITUS
     Route: 048
     Dates: end: 20110209
  8. ADANCOR [Concomitant]
     Indication: MYOCARDIAL ISCHAEMIA
     Route: 048
     Dates: end: 20110209
  9. ESOMEPRAZOLE [Concomitant]
     Indication: PRODUCT USED FOR UNKNOWN INDICATION
     Route: 048
     Dates: end: 20110209
  10. LEXOMIL [Concomitant]
     Indication: PRODUCT USED FOR UNKNOWN INDICATION
     Route: 048

REACTIONS (3)
  - International normalised ratio increased [Recovered/Resolved]
  - Anaemia [Unknown]
  - Melaena [Recovered/Resolved]
